FAERS Safety Report 16847211 (Version 1)
Quarter: 2019Q3

REPORT INFORMATION
  Report Type: Spontaneous
  Country: AU (occurrence: AU)
  Receive Date: 20190924
  Receipt Date: 20190924
  Transmission Date: 20191005
  Serious: Yes (Hospitalization, Other)
  Sender: FDA-Public Use
  Company Number: AU-ALLERGAN-1938321US

PATIENT
  Sex: Female

DRUGS (1)
  1. BOTOX [Suspect]
     Active Substance: ONABOTULINUMTOXINA
     Indication: SKIN WRINKLING
     Dosage: 10 UNITS, SINGLE
     Route: 065

REACTIONS (5)
  - Dizziness [Unknown]
  - Seizure [Recovered/Resolved]
  - Mydriasis [Recovered/Resolved]
  - Moaning [Recovered/Resolved]
  - Micturition disorder [Recovered/Resolved]
